FAERS Safety Report 20654533 (Version 1)
Quarter: 2022Q1

REPORT INFORMATION
  Report Type: Spontaneous
  Country: CN (occurrence: None)
  Receive Date: 20220330
  Receipt Date: 20220330
  Transmission Date: 20220424
  Serious: Yes (Other)
  Sender: FDA-Public Use
  Company Number: 2022A127261

PATIENT
  Sex: Female

DRUGS (1)
  1. TAGRISSO [Suspect]
     Active Substance: OSIMERTINIB
     Route: 048

REACTIONS (20)
  - Lung neoplasm [Unknown]
  - Hepatitis [Unknown]
  - Abdominal pain upper [Unknown]
  - Constipation [Unknown]
  - Increased viscosity of upper respiratory secretion [Unknown]
  - Eye disorder [Unknown]
  - Nausea [Unknown]
  - Insomnia [Unknown]
  - Dyspepsia [Unknown]
  - Throat irritation [Unknown]
  - Chest pain [Unknown]
  - Back pain [Unknown]
  - Lipids increased [Unknown]
  - Discomfort [Unknown]
  - Pain [Unknown]
  - Rhinitis allergic [Unknown]
  - Multiple allergies [Unknown]
  - Hypertension [Unknown]
  - Rash erythematous [Recovered/Resolved]
  - Diarrhoea [Unknown]
